FAERS Safety Report 21009241 (Version 1)
Quarter: 2022Q2

REPORT INFORMATION
  Report Type: Spontaneous
  Country: US (occurrence: None)
  Receive Date: 20220625
  Receipt Date: 20220625
  Transmission Date: 20220721
  Serious: Yes (Disabling)
  Sender: FDA-Public Use
  Company Number: None

PATIENT
  Age: 38 Year
  Sex: Female
  Weight: 54 kg

DRUGS (1)
  1. ZYNRELEF [Suspect]
     Active Substance: BUPIVACAINE\MELOXICAM
     Indication: Procedural pain
     Dosage: OTHER FREQUENCY : ONE TIME;?
     Route: 058

REACTIONS (4)
  - Impaired healing [None]
  - Wound dehiscence [None]
  - Bone swelling [None]
  - Rash [None]

NARRATIVE: CASE EVENT DATE: 20211221
